FAERS Safety Report 6893525-0 (Version None)
Quarter: 2010Q3

REPORT INFORMATION
  Report Type: 
  Country: None (occurrence: None)
  Receive Date: 20100731
  Receipt Date: 20091005
  Transmission Date: 20110219
  Serious: No
  Sender: FDA-Public Use
  Company Number: US-PFIZER INC-2009254287

PATIENT
  Sex: Female
  Weight: 66.2 kg

DRUGS (3)
  1. LIPITOR [Suspect]
     Indication: BLOOD CHOLESTEROL INCREASED
     Dosage: 20 MG, 1X/DAY
     Route: 048
     Dates: start: 20010101
  2. LEVOXYL [Interacting]
     Indication: HYPOTHYROIDISM
     Dosage: 25 UG, UNK
     Dates: start: 20070101
  3. ACETYLSALICYLIC ACID [Concomitant]

REACTIONS (5)
  - BLOOD CREATININE INCREASED [None]
  - DRUG INTERACTION [None]
  - HYPOTHYROIDISM [None]
  - MUSCULAR WEAKNESS [None]
  - MYALGIA [None]
